FAERS Safety Report 10693946 (Version 2)
Quarter: 2015Q1

REPORT INFORMATION
  Report Type: Spontaneous
  Country: BR (occurrence: BR)
  Receive Date: 20150106
  Receipt Date: 20150304
  Transmission Date: 20150721
  Serious: Yes (Other)
  Sender: FDA-Public Use
  Company Number: BR-PFIZER INC-2015002979

PATIENT
  Sex: Female

DRUGS (1)
  1. DOSTINEX [Suspect]
     Active Substance: CABERGOLINE
     Dosage: 0.25 MG, 2X/DAY (EVERY 12 HOURS)

REACTIONS (6)
  - Lactation puerperal increased [Not Recovered/Not Resolved]
  - Movement disorder [Unknown]
  - Malaise [Not Recovered/Not Resolved]
  - Mastitis [Not Recovered/Not Resolved]
  - Breast induration [Not Recovered/Not Resolved]
  - Breast pain [Unknown]
